FAERS Safety Report 16562765 (Version 3)
Quarter: 2019Q3

REPORT INFORMATION
  Report Type: Spontaneous
  Country: FR (occurrence: FR)
  Receive Date: 20190711
  Receipt Date: 20190729
  Transmission Date: 20191004
  Serious: Yes (Life-Threatening, Other)
  Sender: FDA-Public Use
  Company Number: FR-MYLANLABS-2019M1064856

PATIENT
  Age: 70 Year
  Sex: Male

DRUGS (9)
  1. PEGINTERFERON ALFA-2B [Suspect]
     Active Substance: PEGINTERFERON ALFA-2B
     Indication: NON-HODGKIN^S LYMPHOMA
     Dosage: 35 MICROGRAM, QW,35 ?G, 1X/WEEK
     Route: 058
     Dates: start: 20020607, end: 20031030
  2. REBIF [Suspect]
     Active Substance: INTERFERON BETA-1A
     Indication: NON-HODGKIN^S LYMPHOMA
     Dosage: UNK, QW
     Route: 058
     Dates: start: 20020607, end: 20031030
  3. MITOXANTRONE HYDROCHLORIDE. [Concomitant]
     Active Substance: MITOXANTRONE HYDROCHLORIDE
     Indication: NON-HODGKIN^S LYMPHOMA
     Dosage: 15 MG, UNK
     Dates: start: 20060705, end: 200611
  4. PREDNISOLONE. [Concomitant]
     Active Substance: PREDNISOLONE
     Indication: NON-HODGKIN^S LYMPHOMA
     Dosage: 40 MG/M2, 1X/MONTH
     Dates: start: 20020607, end: 20031030
  5. ETOPOSIDE. [Suspect]
     Active Substance: ETOPOSIDE
     Indication: NON-HODGKIN^S LYMPHOMA
     Dosage: 150 MG, UNK
     Route: 042
     Dates: start: 20020607, end: 20031030
  6. CYCLOPHOSPHAMIDE. [Suspect]
     Active Substance: CYCLOPHOSPHAMIDE
     Indication: NON-HODGKIN^S LYMPHOMA
     Dosage: 900 MG, UNK
     Route: 042
     Dates: start: 20020607, end: 20031030
  7. FLUDARABINE PHOSPHATE. [Suspect]
     Active Substance: FLUDARABINE PHOSPHATE
     Indication: NON-HODGKIN^S LYMPHOMA
     Dosage: 60 MG, UNK
     Route: 048
     Dates: start: 20060705, end: 20070128
  8. RITUXIMAB. [Suspect]
     Active Substance: RITUXIMAB
     Indication: NON-HODGKIN^S LYMPHOMA
     Dosage: 600 MG, UNK
     Route: 042
     Dates: start: 20060705, end: 20070125
  9. DOXORUBICIN HYDROCHLORIDE. [Suspect]
     Active Substance: DOXORUBICIN HYDROCHLORIDE
     Indication: NON-HODGKIN^S LYMPHOMA
     Dosage: 40 MG, UNK
     Route: 042
     Dates: start: 20020607, end: 20031030

REACTIONS (2)
  - Metastasis [Not Recovered/Not Resolved]
  - Bladder cancer [Not Recovered/Not Resolved]

NARRATIVE: CASE EVENT DATE: 20070413
